FAERS Safety Report 24048276 (Version 1)
Quarter: 2024Q3

REPORT INFORMATION
  Report Type: Spontaneous
  Country: CH (occurrence: CH)
  Receive Date: 20240704
  Receipt Date: 20240704
  Transmission Date: 20241017
  Serious: Yes (Other)
  Sender: ABBVIE
  Company Number: CH-JNJFOC-20240675135

PATIENT
  Sex: Female

DRUGS (4)
  1. IMBRUVICA [Suspect]
     Active Substance: IBRUTINIB
     Indication: Mantle cell lymphoma
     Dosage: 1-28 OF EACH CYCLE
     Route: 048
  2. OBINUTUZUMAB [Suspect]
     Active Substance: OBINUTUZUMAB
     Indication: Mantle cell lymphoma
     Dosage: 1, 8, 15 CYCLE 1 AND THEN DAY 1 OF EACH CYCLE
     Route: 065
  3. PIRTOBRUTINIB [Suspect]
     Active Substance: PIRTOBRUTINIB
     Indication: Mantle cell lymphoma
     Route: 065
  4. VENETOCLAX [Suspect]
     Active Substance: VENETOCLAX
     Indication: Mantle cell lymphoma
     Dosage: 1-28 (WITH RAMP UP OF THE DOSE PROGRESSIVELY AT THE BEGINNING) CYCLES OF 28 DAYS. 6 CYCLES IN TOTAL
     Route: 048

REACTIONS (1)
  - Mantle cell lymphoma refractory [Unknown]
